FAERS Safety Report 6011443-7 (Version None)
Quarter: 2008Q4

REPORT INFORMATION
  Report Type: 
  Country: None (occurrence: None)
  Receive Date: 20081217
  Receipt Date: 20081217
  Transmission Date: 20090506
  Serious: Yes (Other)
  Sender: FDA-Public Use
  Company Number: None

PATIENT
  Age: 39 Year
  Sex: Female
  Weight: 126.1 kg

DRUGS (1)
  1. MIRTAZAPINE [Suspect]
     Indication: DEPRESSION
     Dosage: 1 TABLET ONCE A DAY AT NIGH PO
     Route: 048
     Dates: start: 20081118, end: 20081202

REACTIONS (1)
  - JOINT SWELLING [None]
